FAERS Safety Report 24819023 (Version 1)
Quarter: 2025Q1

REPORT INFORMATION
  Report Type: Spontaneous
  Country: US (occurrence: None)
  Receive Date: 20250107
  Receipt Date: 20250107
  Transmission Date: 20250409
  Serious: Yes (Disabling, Other)
  Sender: FDA-CTU
  Company Number: None

PATIENT
  Age: 61 Year
  Sex: Female
  Weight: 72 kg

DRUGS (10)
  1. RINVOQ [Suspect]
     Active Substance: UPADACITINIB
     Indication: Dermatitis atopic
     Route: 048
  2. XOLAIR [Concomitant]
     Active Substance: OMALIZUMAB
  3. OPZELURA [Concomitant]
     Active Substance: RUXOLITINIB PHOSPHATE
  4. TRULICITY [Concomitant]
     Active Substance: DULAGLUTIDE
  5. ADBRY [Concomitant]
     Active Substance: TRALOKINUMAB-LDRM
  6. CORTEF [Concomitant]
     Active Substance: HYDROCORTISONE
  7. PANTOPRAZOLE [Concomitant]
     Active Substance: PANTOPRAZOLE
  8. VITAMIN D3 [Concomitant]
     Active Substance: CHOLECALCIFEROL
  9. FOLIC ACID [Concomitant]
     Active Substance: FOLIC ACID
  10. B12 [Concomitant]

REACTIONS (5)
  - Vomiting [None]
  - Gastrointestinal disorder [None]
  - Gastrooesophageal reflux disease [None]
  - Quality of life decreased [None]
  - Haematochezia [None]

NARRATIVE: CASE EVENT DATE: 20240601
